FAERS Safety Report 21179683 (Version 10)
Quarter: 2023Q1

REPORT INFORMATION
  Report Type: Report from Study
  Country: GB (occurrence: GB)
  Receive Date: 20220805
  Receipt Date: 20230103
  Transmission Date: 20230418
  Serious: Yes (Death, Hospitalization, Other)
  Sender: FDA-Public Use
  Company Number: GB-SAMSUNG BIOEPIS-SB-2021-09787

PATIENT
  Age: 67 Year
  Sex: Female

DRUGS (40)
  1. ADALIMUMAB [Suspect]
     Active Substance: ADALIMUMAB
     Indication: Product used for unknown indication
     Route: 058
     Dates: start: 20151124
  2. PEGVORHYALURONIDASE ALFA [Suspect]
     Active Substance: PEGVORHYALURONIDASE ALFA
     Indication: HER2 positive breast cancer
     Route: 065
     Dates: start: 20151124
  3. SOLTAMOX [Suspect]
     Active Substance: TAMOXIFEN CITRATE
     Indication: Breast cancer metastatic
  4. SOLTAMOX [Suspect]
     Active Substance: TAMOXIFEN CITRATE
     Indication: Breast cancer metastatic
     Dosage: 20 MG, QD TIME INTERVAL BETWEEN BEGINNING OF DRUG
     Dates: start: 20160712, end: 20160802
  5. HYALURONIDASE [Suspect]
     Active Substance: HYALURONIDASE
     Indication: HER2 positive breast cancer
     Dosage: 600 MILLIGRAM, Q3WK
     Route: 058
     Dates: start: 20151124, end: 20151221
  6. HYALURONIDASE [Suspect]
     Active Substance: HYALURONIDASE
     Indication: HER2 positive breast cancer
     Dosage: ALSO RECEIVED 600 MG FROM 31-MAY-2016 TO 15-NOV-2016.,HER-2 POSITIVE BREAST CANCER
     Route: 058
     Dates: start: 20160531, end: 20161115
  7. IMRALDI [Suspect]
     Active Substance: ADALIMUMAB
     Indication: Colitis ulcerative
     Dosage: WEEK ZERO
     Route: 058
     Dates: start: 20210401
  8. IMRALDI [Suspect]
     Active Substance: ADALIMUMAB
     Indication: Colitis ulcerative
     Dosage: WEEK TWO
     Route: 058
  9. IMRALDI [Suspect]
     Active Substance: ADALIMUMAB
     Indication: Colitis ulcerative
     Dosage: FROM WEEK FOUR (MAINTENANCE)
     Route: 058
  10. PACLITAXEL [Suspect]
     Active Substance: PACLITAXEL
     Indication: HER2 positive breast cancer
     Dosage: 141 MILLIGRAMS
     Route: 042
     Dates: start: 20151124, end: 20151221
  11. PACLITAXEL [Suspect]
     Active Substance: PACLITAXEL
     Indication: HER2 positive breast cancer
     Route: 042
     Dates: start: 20160531, end: 20161115
  12. HYALURONIDASE (HUMAN RECOMBINANT) [Suspect]
     Active Substance: HYALURONIDASE (HUMAN RECOMBINANT)
     Indication: Breast cancer metastatic
     Dosage: UNK, Q3WK
     Route: 058
     Dates: start: 20151124, end: 20151221
  13. HYALURONIDASE (HUMAN RECOMBINANT) [Suspect]
     Active Substance: HYALURONIDASE (HUMAN RECOMBINANT)
     Indication: Breast cancer metastatic
     Dosage: 600 MILLIGRAM, Q3WK
     Route: 058
     Dates: start: 20160531, end: 20161115
  14. TAMOXIFEN CITRATE [Suspect]
     Active Substance: TAMOXIFEN CITRATE
     Indication: HER2 positive breast cancer
     Dosage: 600 MILLIGRAM, Q3WK
     Route: 048
     Dates: start: 20160531, end: 20161115
  15. TAMOXIFEN CITRATE [Suspect]
     Active Substance: TAMOXIFEN CITRATE
     Indication: HER2 positive breast cancer
     Dosage: 20 MILLIGRAM, QD
     Route: 048
     Dates: start: 20160712, end: 20160802
  16. TAMOXIFEN CITRATE [Suspect]
     Active Substance: TAMOXIFEN CITRATE
     Indication: HER2 positive breast cancer
     Route: 048
  17. TRASTUZUMAB [Suspect]
     Active Substance: TRASTUZUMAB
     Indication: Breast cancer metastatic
     Dosage: 600 MILLIGRAM, PER 3 WEEKS
     Route: 058
     Dates: start: 20151124, end: 20151221
  18. TRASTUZUMAB [Suspect]
     Active Substance: TRASTUZUMAB
     Indication: Breast cancer metastatic
     Dosage: 600 MILLIGRAM, Q3WK
     Route: 058
     Dates: start: 20160531, end: 20161115
  19. CAPECITABINE [Suspect]
     Active Substance: CAPECITABINE
     Indication: Breast cancer metastatic
     Dosage: 1500 MG
     Route: 048
     Dates: start: 20161122, end: 20161213
  20. CAPECITABINE [Suspect]
     Active Substance: CAPECITABINE
     Indication: Breast cancer metastatic
     Dosage: 1000 MILLIGRAM, EVERY 4 DAYS
     Route: 048
     Dates: start: 20161122, end: 20161213
  21. CAPECITABINE [Suspect]
     Active Substance: CAPECITABINE
     Indication: Breast cancer metastatic
     Dosage: 1300 MILLIGRAM, 2 PER DAY
     Route: 048
     Dates: start: 20161213, end: 20161216
  22. CAPECITABINE [Suspect]
     Active Substance: CAPECITABINE
     Indication: Breast cancer metastatic
     Route: 048
     Dates: start: 20161213, end: 20161216
  23. CAPECITABINE [Suspect]
     Active Substance: CAPECITABINE
     Indication: Breast cancer metastatic
     Route: 048
     Dates: start: 20160531, end: 20161115
  24. EXEMESTANE [Suspect]
     Active Substance: EXEMESTANE
     Indication: HER2 positive breast cancer
     Dosage: 25 MILLIGRAM, QD
     Route: 048
     Dates: start: 20160531, end: 20160610
  25. EXEMESTANE [Suspect]
     Active Substance: EXEMESTANE
     Indication: HER2 positive breast cancer
     Dosage: UNK, QD
     Route: 065
     Dates: start: 20160712, end: 20161115
  26. EXEMESTANE [Suspect]
     Active Substance: EXEMESTANE
     Indication: HER2 positive breast cancer
     Route: 048
     Dates: start: 20160712
  27. PACLITAXEL [Suspect]
     Active Substance: PACLITAXEL
     Indication: HER2 positive breast cancer
     Dosage: 141 MILLIGRAM, MONTHLY
     Route: 042
     Dates: start: 20151124, end: 20151221
  28. PACLITAXEL [Suspect]
     Active Substance: PACLITAXEL
     Indication: HER2 positive breast cancer
     Dosage: 141 MG, UNK
     Route: 042
     Dates: start: 20161122
  29. PACLITAXEL [Suspect]
     Active Substance: PACLITAXEL
     Indication: HER2 positive breast cancer
     Dosage: UNK
     Route: 065
     Dates: start: 20161124
  30. CALCIUM CARBONATE\CHOLECALCIFEROL [Concomitant]
     Active Substance: CALCIUM CARBONATE\CHOLECALCIFEROL
     Indication: HER2 positive breast cancer
     Route: 048
     Dates: start: 20101221, end: 201511
  31. CALCIUM CARBONATE\CHOLECALCIFEROL [Concomitant]
     Active Substance: CALCIUM CARBONATE\CHOLECALCIFEROL
     Indication: HER2 positive breast cancer
     Route: 048
     Dates: start: 20160531, end: 20161115
  32. ENOXAPARIN [Concomitant]
     Active Substance: ENOXAPARIN
     Indication: Embolism venous
     Dosage: 20 MILLIGRAMS, DAILY AND PREVENTION OF VENOUS THROMBOEMBOLISM
     Route: 058
     Dates: start: 20160104, end: 20160106
  33. ENOXAPARIN [Concomitant]
     Active Substance: ENOXAPARIN
     Indication: Embolism venous
     Dosage: 20 MG, 1 PER DAY
     Route: 058
     Dates: start: 20160106
  34. OMEPRAZOLE [Concomitant]
     Active Substance: OMEPRAZOLE
     Indication: Product used for unknown indication
     Dosage: 20 MG
     Route: 048
     Dates: start: 20170530, end: 20170530
  35. OMEPRAZOLE [Concomitant]
     Active Substance: OMEPRAZOLE
     Indication: Product used for unknown indication
     Dosage: 1 DOSAGE FORM, QD
     Route: 048
  36. CHOLECALCIFEROL [Concomitant]
     Active Substance: CHOLECALCIFEROL
     Indication: Product used for unknown indication
     Route: 048
     Dates: start: 20101221
  37. CHOLECALCIFEROL [Concomitant]
     Active Substance: CHOLECALCIFEROL
     Indication: Product used for unknown indication
     Route: 048
     Dates: start: 20170530
  38. CHOLECALCIFEROL [Concomitant]
     Active Substance: CHOLECALCIFEROL
     Indication: Product used for unknown indication
     Route: 048
     Dates: start: 20170530
  39. CHOLECALCIFEROL [Concomitant]
     Active Substance: CHOLECALCIFEROL
     Indication: Product used for unknown indication
     Route: 048
     Dates: start: 20170530
  40. CHOLECALCIFEROL [Concomitant]
     Active Substance: CHOLECALCIFEROL
     Indication: Product used for unknown indication
     Route: 048
     Dates: start: 20101221

REACTIONS (66)
  - Death [Fatal]
  - Balance disorder [Not Recovered/Not Resolved]
  - Dyspnoea [Recovered/Resolved]
  - Cerebral haemorrhage [Recovered/Resolved]
  - Abdominal pain upper [Unknown]
  - Muscle twitching [Unknown]
  - Sensory loss [Not Recovered/Not Resolved]
  - Asthenia [Not Recovered/Not Resolved]
  - Blood alkaline phosphatase increased [Recovered/Resolved with Sequelae]
  - Pain [Unknown]
  - Hypertension [Recovered/Resolved with Sequelae]
  - Malaise [Not Recovered/Not Resolved]
  - Cerebral haemorrhage [Recovered/Resolved]
  - Balance disorder [Not Recovered/Not Resolved]
  - Balance disorder [Unknown]
  - Ill-defined disorder [Unknown]
  - White blood cell count increased [Recovered/Resolved]
  - Hypokalaemia [Recovered/Resolved]
  - Lymphopenia [Recovered/Resolved with Sequelae]
  - Vomiting [Recovered/Resolved]
  - Blood bilirubin increased [Recovered/Resolved]
  - Ascites [Not Recovered/Not Resolved]
  - Aspartate aminotransferase increased [Recovered/Resolved]
  - Diarrhoea [Recovered/Resolved]
  - Blood creatinine increased [Recovered/Resolved]
  - Agitation [Recovered/Resolved]
  - C-reactive protein increased [Unknown]
  - Alanine aminotransferase increased [Recovered/Resolved]
  - Fatigue [Recovered/Resolved]
  - Blood glucose increased [Recovered/Resolved]
  - Neutrophil count increased [Recovered/Resolved]
  - Urinary tract infection [Unknown]
  - Vomiting [Recovered/Resolved]
  - Constipation [Recovered/Resolved]
  - Blood phosphorus increased [Recovered/Resolved]
  - Sensory disturbance [Not Recovered/Not Resolved]
  - Hypernatraemia [Recovered/Resolved]
  - Blood alkaline phosphatase increased [Recovered/Resolved with Sequelae]
  - Protein total decreased [Recovered/Resolved]
  - Pyrexia [Recovered/Resolved]
  - Nausea [Recovered/Resolved]
  - Hypoalbuminaemia [Recovered/Resolved]
  - Blood urea increased [Unknown]
  - Crohn^s disease [Not Recovered/Not Resolved]
  - Rectal haemorrhage [Recovering/Resolving]
  - Product administered at inappropriate site [Unknown]
  - Vomiting [Recovered/Resolved]
  - Pain [Recovered/Resolved]
  - Haemoglobin decreased [Not Recovered/Not Resolved]
  - Haemorrhage [Unknown]
  - Irritability [Recovered/Resolved]
  - Depressed mood [Unknown]
  - Musculoskeletal stiffness [Not Recovered/Not Resolved]
  - Back pain [Recovered/Resolved]
  - Neck pain [Unknown]
  - Insomnia [Unknown]
  - Headache [Unknown]
  - Sinusitis [Unknown]
  - Product administered at inappropriate site [Unknown]
  - Crying [Unknown]
  - Fatigue [Unknown]
  - Tremor [Unknown]
  - Injection site pain [Unknown]
  - Musculoskeletal stiffness [Not Recovered/Not Resolved]
  - Colitis ulcerative [Recovering/Resolving]
  - Rectal haemorrhage [Recovering/Resolving]

NARRATIVE: CASE EVENT DATE: 20151110
